FAERS Safety Report 24416101 (Version 1)
Quarter: 2024Q4

REPORT INFORMATION
  Report Type: Spontaneous
  Country: US (occurrence: None)
  Receive Date: 20241008
  Receipt Date: 20241008
  Transmission Date: 20250115
  Serious: No
  Sender: Public
  Company Number: None

PATIENT
  Age: 72 Year
  Sex: Male

DRUGS (1)
  1. FINERENONE [Suspect]
     Active Substance: FINERENONE
     Dosage: FREQUENCY : DAILY;?
     Route: 048

REACTIONS (4)
  - Dizziness [None]
  - Vomiting [None]
  - Nausea [None]
  - Feeling drunk [None]

NARRATIVE: CASE EVENT DATE: 20240625
